FAERS Safety Report 8827765 (Version 2)
Quarter: 2014Q3

REPORT INFORMATION
  Report Type: Report from Study
  Country: US (occurrence: US)
  Receive Date: 20121005
  Receipt Date: 20140827
  Transmission Date: 20150326
  Serious: Yes (Death, Other)
  Sender: FDA-Public Use
  Company Number: US-ROCHE-1128738

PATIENT
  Age: 62 Year
  Sex: Female

DRUGS (4)
  1. RITUXAN [Suspect]
     Active Substance: RITUXIMAB
     Indication: POLYARTERITIS NODOSA
  2. RITUXAN [Suspect]
     Active Substance: RITUXIMAB
     Indication: ARTERITIS
  3. RITUXAN [Suspect]
     Active Substance: RITUXIMAB
     Indication: HAEMOLYTIC ANAEMIA
  4. RITUXAN [Suspect]
     Active Substance: RITUXIMAB
     Indication: RHEUMATOID ARTHRITIS
     Route: 042
     Dates: start: 20100527, end: 20100616

REACTIONS (4)
  - Renal failure [Fatal]
  - Respiratory failure [Fatal]
  - Hypertensive emergency [Unknown]
  - Off label use [Unknown]

NARRATIVE: CASE EVENT DATE: 20100816
